FAERS Safety Report 14240698 (Version 1)
Quarter: 2017Q4

REPORT INFORMATION
  Report Type: Spontaneous
  Country: JP (occurrence: JP)
  Receive Date: 20171130
  Receipt Date: 20171130
  Transmission Date: 20180321
  Serious: Yes (Hospitalization)
  Sender: FDA-Public Use
  Company Number: JP-ELI_LILLY_AND_COMPANY-JP201711009179

PATIENT
  Age: 75 Year
  Sex: Male

DRUGS (4)
  1. CYRAMZA [Suspect]
     Active Substance: RAMUCIRUMAB
     Indication: NON-SMALL CELL LUNG CANCER
     Dosage: 10 MG/KG, UNK
     Route: 041
  2. G LASTA [Concomitant]
     Active Substance: PEGFILGRASTIM
     Indication: PROPHYLAXIS
  3. DOCETAXEL. [Suspect]
     Active Substance: DOCETAXEL
     Indication: NON-SMALL CELL LUNG CANCER
     Dosage: 60 MG/M2, UNK
     Route: 041
  4. DOCETAXEL. [Suspect]
     Active Substance: DOCETAXEL
     Dosage: 50 MG/M2, UNK
     Route: 041

REACTIONS (2)
  - Subcutaneous abscess [Unknown]
  - Neutropenia [Unknown]
